FAERS Safety Report 9358712 (Version 1)
Quarter: 2013Q2

REPORT INFORMATION
  Report Type: Spontaneous
  Country: JP (occurrence: JP)
  Receive Date: 20130620
  Receipt Date: 20130620
  Transmission Date: 20140414
  Serious: Yes (Other)
  Sender: FDA-Public Use
  Company Number: JP-VIIV HEALTHCARE LIMITED-B0901054A

PATIENT
  Age: 39 Year
  Sex: Male

DRUGS (4)
  1. LAMIVUDINE + ZIDOVUDINE [Suspect]
     Indication: ANTIRETROVIRAL THERAPY
     Route: 065
  2. LOPINAVIR + RITONAVIR [Suspect]
     Indication: ANTIRETROVIRAL THERAPY
     Route: 065
  3. TENOFOVIR DISOPROXIL FUMARATE [Suspect]
     Indication: ANTIRETROVIRAL THERAPY
     Route: 065
  4. EMTRICITABINE [Suspect]
     Indication: ANTIRETROVIRAL THERAPY
     Route: 065

REACTIONS (8)
  - Basedow^s disease [Recovered/Resolved]
  - Anaemia [Unknown]
  - Dizziness [Unknown]
  - Palpitations [Unknown]
  - Tremor [Unknown]
  - Fatigue [Unknown]
  - Hypoaesthesia [Unknown]
  - Weight decreased [Unknown]
